FAERS Safety Report 6116735-9 (Version None)
Quarter: 2009Q1

REPORT INFORMATION
  Report Type: 
  Country: None (occurrence: None)
  Receive Date: 20090314
  Receipt Date: 20081226
  Transmission Date: 20090719
  Serious: No
  Sender: FDA-Public Use
  Company Number: US-ABBOTT-08P-163-0494942-00

PATIENT

DRUGS (2)
  1. HUMIRA [Suspect]
     Indication: RHEUMATOID ARTHRITIS
  2. CARAC [Concomitant]
     Indication: HYPERKERATOSIS
     Dosage: TOPICAL

REACTIONS (2)
  - BLOOD PRESSURE INCREASED [None]
  - HYPERKERATOSIS [None]
